FAERS Safety Report 9276275 (Version 1)
Quarter: 2013Q2

REPORT INFORMATION
  Report Type: Spontaneous
  Country: FR (occurrence: FR)
  Receive Date: 20130507
  Receipt Date: 20130507
  Transmission Date: 20140414
  Serious: Yes (Death, Other)
  Sender: FDA-Public Use
  Company Number: PHHY2013FR044133

PATIENT
  Age: 23 Year
  Sex: Female

DRUGS (1)
  1. TOBRAMYCIN [Suspect]
     Dosage: UNK

REACTIONS (3)
  - Death [Fatal]
  - Respiratory disorder [Not Recovered/Not Resolved]
  - Drug resistance [Unknown]
